FAERS Safety Report 8555246-8 (Version None)
Quarter: 2012Q3

REPORT INFORMATION
  Report Type: 
  Country: None (occurrence: None)
  Receive Date: 20120731
  Receipt Date: 20120521
  Transmission Date: 20120928
  Serious: No
  Sender: FDA-Public Use
  Company Number: US-ASTRAZENECA-2012SE32674

PATIENT
  Sex: Female

DRUGS (3)
  1. SEROQUEL [Suspect]
     Indication: PROMOTION OF WOUND HEALING
     Route: 048
  2. POST NATAL VITAMINS [Concomitant]
  3. SEROQUEL [Suspect]
     Route: 048

REACTIONS (3)
  - DRUG DISPENSING ERROR [None]
  - FEELING ABNORMAL [None]
  - OFF LABEL USE [None]
